FAERS Safety Report 10802030 (Version 6)
Quarter: 2015Q2

REPORT INFORMATION
  Report Type: Spontaneous
  Country: JP (occurrence: JP)
  Receive Date: 20150217
  Receipt Date: 20150506
  Transmission Date: 20150821
  Serious: Yes (Death, Life-Threatening, Other)
  Sender: FDA-Public Use
  Company Number: JP-MALLINCKRODT-T201501240

PATIENT
  Age: 71 Year
  Sex: Male
  Weight: 58 kg

DRUGS (21)
  1. OXINORM [Concomitant]
     Active Substance: OXYCODONE HYDROCHLORIDE
     Dosage: 10 MG, PRN
     Route: 048
     Dates: start: 20150120
  2. METHADONE [Suspect]
     Active Substance: METHADONE HYDROCHLORIDE
     Dosage: 20MG, (40MG DAILY DOSE)
     Route: 048
     Dates: start: 20150216, end: 20150218
  3. SEROQUEL [Suspect]
     Active Substance: QUETIAPINE FUMARATE
     Indication: PRODUCT USED FOR UNKNOWN INDICATION
     Dosage: 25 MG (25 MG DAILY DOSE)
     Route: 048
     Dates: start: 20150124, end: 20150124
  4. ZYPREXA [Concomitant]
     Active Substance: OLANZAPINE
     Dosage: 5 MG
     Route: 048
     Dates: end: 20150129
  5. CLARITIN [Concomitant]
     Active Substance: LORATADINE
     Dosage: 10 MG
     Route: 048
  6. METHADONE [Suspect]
     Active Substance: METHADONE HYDROCHLORIDE
     Indication: CANCER PAIN
     Dosage: 10 MG (30 MG DAILY DOSE)
     Route: 048
     Dates: start: 20150120, end: 20150125
  7. METHADONE [Suspect]
     Active Substance: METHADONE HYDROCHLORIDE
     Dosage: 15MG, (30MG DAILY DOSE )
     Route: 048
     Dates: start: 20150212, end: 20150215
  8. TIAPRIDE [Concomitant]
     Active Substance: TIAPRIDE
     Dosage: 75 MG
     Route: 048
     Dates: start: 20150129
  9. ROPION [Concomitant]
     Active Substance: FLURBIPROFEN AXETIL
     Dosage: 50 MG
     Route: 051
     Dates: start: 20150224, end: 20150224
  10. METHADONE [Suspect]
     Active Substance: METHADONE HYDROCHLORIDE
     Dosage: 25MG, (50MG DAILY DOSE)
     Route: 048
     Dates: start: 20150219, end: 20150226
  11. MAGNESIUM OXIDE. [Concomitant]
     Active Substance: MAGNESIUM OXIDE
     Dosage: 1000 MG
     Route: 048
  12. LYRICA [Concomitant]
     Active Substance: PREGABALIN
     Dosage: 75 MG
     Route: 048
     Dates: start: 20150218, end: 20150222
  13. METHADONE [Suspect]
     Active Substance: METHADONE HYDROCHLORIDE
     Dosage: 10 MG (20 MG DAILY DOSE)
     Route: 048
     Dates: start: 20150126, end: 20150202
  14. RHUBARB DRY EXTRACT [Concomitant]
     Dosage: 600 MG
     Route: 048
  15. MUCOSTA [Concomitant]
     Active Substance: REBAMIPIDE
     Dosage: 300 MG
     Route: 048
  16. MORPHINE HCL [Concomitant]
     Active Substance: MORPHINE HYDROCHLORIDE
     Dosage: 10 MG
     Route: 029
     Dates: start: 20150224, end: 20150224
  17. ZYPREXA [Concomitant]
     Active Substance: OLANZAPINE
     Dosage: 2.5 MG
     Route: 048
     Dates: start: 20150130, end: 20150130
  18. ZYPREXA [Concomitant]
     Active Substance: OLANZAPINE
     Dosage: 2.5 MG
     Route: 048
     Dates: start: 20150209, end: 20150303
  19. ADONA [Concomitant]
     Active Substance: CARBAZOCHROME SODIUM SULFONATE
     Dosage: 90 MG
     Route: 048
  20. YOKUKANSAN [Concomitant]
     Active Substance: HERBALS
     Dosage: 7.5 G
     Route: 048
     Dates: start: 20150128
  21. REMINYL [Concomitant]
     Active Substance: GALANTAMINE
     Dosage: 4 MG
     Route: 048
     Dates: start: 20150206, end: 20150303

REACTIONS (8)
  - Delirium [Not Recovered/Not Resolved]
  - Dehydration [Recovering/Resolving]
  - Oral candidiasis [Recovering/Resolving]
  - Xeroderma [Recovered/Resolved]
  - Hypoglycaemia [Recovered/Resolved]
  - Decreased appetite [Not Recovered/Not Resolved]
  - Constipation [Recovering/Resolving]
  - Rectal cancer [Fatal]

NARRATIVE: CASE EVENT DATE: 20150125
